FAERS Safety Report 13909584 (Version 4)
Quarter: 2018Q1

REPORT INFORMATION
  Report Type: Spontaneous
  Country: US (occurrence: US)
  Receive Date: 20170828
  Receipt Date: 20180216
  Transmission Date: 20180508
  Serious: No
  Sender: FDA-Public Use
  Company Number: US-PFIZER INC-2017363494

PATIENT
  Age: 57 Year
  Sex: Female

DRUGS (2)
  1. DEPO-ESTRADIOL [Suspect]
     Active Substance: ESTRADIOL CYPIONATE
     Indication: HYSTERECTOMY
     Dosage: UNK (1-CC EVERY 3 WEEKS)
     Route: 030
     Dates: start: 1990
  2. DEPO-ESTRADIOL [Suspect]
     Active Substance: ESTRADIOL CYPIONATE
     Indication: MENOPAUSE
     Dosage: UNK (1-CC EVERY 3 WEEKS)
     Route: 030
     Dates: start: 20110729

REACTIONS (2)
  - Cold sweat [Recovered/Resolved]
  - Drug withdrawal syndrome [Recovered/Resolved]

NARRATIVE: CASE EVENT DATE: 20171128
